FAERS Safety Report 9499222 (Version 1)
Quarter: 2013Q3

REPORT INFORMATION
  Report Type: Spontaneous
  Country: US (occurrence: US)
  Receive Date: 20130905
  Receipt Date: 20130905
  Transmission Date: 20140515
  Serious: No
  Sender: FDA-Public Use
  Company Number: US-BIOGENIDEC-2013BI081471

PATIENT
  Age: 42 Year
  Sex: Female

DRUGS (3)
  1. AVONEX [Suspect]
     Indication: MULTIPLE SCLEROSIS
     Route: 030
     Dates: start: 20081024, end: 2012
  2. AVONEX [Suspect]
     Indication: MULTIPLE SCLEROSIS
     Route: 030
     Dates: start: 2012, end: 20130506
  3. GABAPENTIN [Concomitant]
     Indication: PARAESTHESIA
     Dates: start: 201205, end: 201206

REACTIONS (4)
  - Multiple sclerosis [Unknown]
  - Coordination abnormal [Recovered/Resolved]
  - Dysarthria [Recovered/Resolved]
  - Paraesthesia [Recovered/Resolved]
